FAERS Safety Report 9411696 (Version 4)
Quarter: 2015Q1

REPORT INFORMATION
  Report Type: Report from Study
  Country: US (occurrence: US)
  Receive Date: 20130722
  Receipt Date: 20150320
  Transmission Date: 20150721
  Serious: Yes (Hospitalization, Other)
  Sender: FDA-Public Use
  Company Number: US-SANOFI-AVENTIS-2013SA072502

PATIENT
  Age: 69 Year
  Sex: Female

DRUGS (16)
  1. LANTUS SOLOSTAR [Suspect]
     Active Substance: INSULIN GLARGINE
     Indication: TYPE 2 DIABETES MELLITUS
     Dosage: PRODUCT START DATE: 2-3 YEARS AGO DOSE:25 UNIT(S)
     Route: 058
     Dates: start: 2009
  2. LANTUS SOLOSTAR [Suspect]
     Active Substance: INSULIN GLARGINE
     Indication: TYPE 2 DIABETES MELLITUS
     Dosage: PRODUCT START DATE: 2-3 YEARS AGO DOSE:45 UNIT(S)
     Route: 058
  3. SOLOSTAR [Concomitant]
     Active Substance: DEVICE
     Indication: TYPE 2 DIABETES MELLITUS
  4. SOLOSTAR [Concomitant]
     Active Substance: DEVICE
     Indication: TYPE 2 DIABETES MELLITUS
  5. LANTUS SOLOSTAR [Suspect]
     Active Substance: INSULIN GLARGINE
     Indication: TYPE 2 DIABETES MELLITUS
     Dosage: PRODUCT START DATE: 2-3 YEARS AGO DOSE:25 UNIT(S)
     Route: 058
     Dates: start: 2009
  6. LANTUS SOLOSTAR [Suspect]
     Active Substance: INSULIN GLARGINE
     Indication: TYPE 2 DIABETES MELLITUS
     Dosage: PRODUCT START DATE: 2-3 YEARS AGO DOSE:25 UNIT(S)
     Route: 058
     Dates: start: 2009
  7. SOLOSTAR [Concomitant]
     Active Substance: DEVICE
     Indication: TYPE 2 DIABETES MELLITUS
  8. LANTUS SOLOSTAR [Suspect]
     Active Substance: INSULIN GLARGINE
     Indication: TYPE 2 DIABETES MELLITUS
     Dosage: PRODUCT START DATE: 2-3 YEARS AGO DOSE:25 UNIT(S)
     Route: 058
     Dates: start: 2009
  9. LANTUS SOLOSTAR [Suspect]
     Active Substance: INSULIN GLARGINE
     Indication: TYPE 2 DIABETES MELLITUS
     Dosage: PRODUCT START DATE: 2-3 YEARS AGO DOSE:25 UNIT(S)
     Route: 058
     Dates: start: 2009
  10. LANTUS SOLOSTAR [Suspect]
     Active Substance: INSULIN GLARGINE
     Indication: TYPE 2 DIABETES MELLITUS
     Dosage: PRODUCT START DATE: 2-3 YEARS AGO DOSE:25 UNIT(S)
     Route: 058
     Dates: start: 2009
  11. SOLOSTAR [Concomitant]
     Active Substance: DEVICE
     Indication: TYPE 2 DIABETES MELLITUS
  12. SOLOSTAR [Concomitant]
     Active Substance: DEVICE
     Indication: TYPE 2 DIABETES MELLITUS
  13. SOLOSTAR [Concomitant]
     Active Substance: DEVICE
     Indication: TYPE 2 DIABETES MELLITUS
  14. SOLOSTAR [Concomitant]
     Active Substance: DEVICE
     Indication: TYPE 2 DIABETES MELLITUS
  15. LANTUS SOLOSTAR [Suspect]
     Active Substance: INSULIN GLARGINE
     Indication: TYPE 2 DIABETES MELLITUS
     Dosage: PRODUCT START DATE: 2-3 YEARS AGO DOSE:25 UNIT(S)
     Route: 058
     Dates: start: 2009
  16. LANTUS SOLOSTAR [Suspect]
     Active Substance: INSULIN GLARGINE
     Indication: TYPE 2 DIABETES MELLITUS
     Dosage: PRODUCT START DATE: 2-3 YEARS AGO DOSE:45 UNIT(S)
     Route: 058

REACTIONS (16)
  - Breast cancer [Unknown]
  - Hepatic cyst [Unknown]
  - Joint dislocation [Unknown]
  - Off label use [Unknown]
  - Hepatic mass [Unknown]
  - Visual acuity reduced [Unknown]
  - Renal mass [Unknown]
  - Varices oesophageal [Unknown]
  - Renal cyst [Unknown]
  - Diverticulitis [Unknown]
  - Arthritis [Not Recovered/Not Resolved]
  - Hypertension [Unknown]
  - Arthralgia [Unknown]
  - Hepatic cirrhosis [Unknown]
  - Dizziness [Unknown]
  - Gait disturbance [Not Recovered/Not Resolved]

NARRATIVE: CASE EVENT DATE: 2009
